FAERS Safety Report 9190201 (Version 2)
Quarter: 2013Q2

REPORT INFORMATION
  Report Type: Spontaneous
  Country: DE (occurrence: None)
  Receive Date: 20130322
  Receipt Date: 20130422
  Transmission Date: 20140414
  Serious: Yes (Life-Threatening, Hospitalization)
  Sender: FDA-Public Use
  Company Number: DE-011169

PATIENT
  Age: 58 Year
  Sex: Female
  Weight: 57 kg

DRUGS (3)
  1. PICOPREP [Suspect]
     Indication: BOWEL PREPARATION
     Dosage: 1 SACHET ORAL
     Route: 048
     Dates: start: 20130304, end: 20130305
  2. RAMIPRIL HEXAL [Suspect]
     Indication: BLOOD PRESSURE
     Dosage: TO UNKNOWN
     Route: 048
  3. HCT HEXAL [Suspect]
     Indication: BLOOD PRESSURE
     Dosage: 1 TABLET ORAL TO UNKNOWN
     Route: 048

REACTIONS (4)
  - Hypernatraemia [None]
  - Grand mal convulsion [None]
  - Unresponsive to stimuli [None]
  - Confusional state [None]
